FAERS Safety Report 7036976-6 (Version None)
Quarter: 2010Q4

REPORT INFORMATION
  Report Type: 
  Country: None (occurrence: None)
  Receive Date: 20101011
  Receipt Date: 20101005
  Transmission Date: 20110411
  Serious: Yes (Other)
  Sender: FDA-Public Use
  Company Number: IT-BRISTOL-MYERS SQUIBB COMPANY-15324627

PATIENT
  Age: 56 Year
  Sex: Male

DRUGS (10)
  1. COUMADIN [Suspect]
     Indication: DEEP VEIN THROMBOSIS
     Dates: start: 20070531, end: 20100929
  2. PLAVIX [Suspect]
  3. LEVOXACIN [Suspect]
     Indication: BRONCHOPNEUMONIA
     Route: 048
     Dates: start: 20100923, end: 20100929
  4. LIMPIDEX [Concomitant]
  5. ISOPTIN [Concomitant]
  6. MEDROL [Concomitant]
  7. PLAQUENIL [Concomitant]
  8. ASPIRIN [Concomitant]
  9. OPTINATE [Concomitant]
  10. DIBASE [Concomitant]

REACTIONS (2)
  - BRONCHOPNEUMONIA [None]
  - INTERNATIONAL NORMALISED RATIO INCREASED [None]
